FAERS Safety Report 5379869-2 (Version None)
Quarter: 2007Q2

REPORT INFORMATION
  Report Type: 
  Country: None (occurrence: None)
  Receive Date: 20070530
  Receipt Date: 20070302
  Transmission Date: 20071010
  Serious: No
  Sender: FDA-Public Use
  Company Number: 2007PV030980

PATIENT
  Age: 64 Year
  Sex: Female

DRUGS (4)
  1. BYETTA [Suspect]
     Indication: DIABETES MELLITUS NON-INSULIN-DEPENDENT
     Dosage: 10 MCG;BID;SC, 5 MCG; BID; SC
     Route: 058
     Dates: start: 20060101, end: 20060101
  2. BYETTA [Suspect]
     Indication: DIABETES MELLITUS NON-INSULIN-DEPENDENT
     Dosage: 10 MCG;BID;SC, 5 MCG; BID; SC
     Route: 058
     Dates: start: 20060101
  3. METFORMIN HCL [Concomitant]
  4. AVANDIA [Concomitant]

REACTIONS (1)
  - INJECTION [None]
